FAERS Safety Report 20130930 (Version 1)
Quarter: 2021Q4

REPORT INFORMATION
  Report Type: Spontaneous
  Country: US (occurrence: None)
  Receive Date: 20211130
  Receipt Date: 20211130
  Transmission Date: 20220303
  Serious: Yes (Hospitalization)
  Sender: FDA-Public Use
  Company Number: None

PATIENT
  Age: 46 Year
  Sex: Female

DRUGS (6)
  1. XELJANZ XR [Suspect]
     Active Substance: TOFACITINIB CITRATE
     Indication: Rheumatoid arthritis
     Dosage: FREQUENCY : DAILY;?
     Route: 048
     Dates: start: 20190605
  2. DICLOFENAC [Concomitant]
     Active Substance: DICLOFENAC
  3. HYDROCHLOR [Concomitant]
  4. KISINOP/HCTZ [Concomitant]
  5. LOTEPREDNOL [Concomitant]
     Active Substance: LOTEPREDNOL
  6. PANTOPRAZOLE [Concomitant]
     Active Substance: PANTOPRAZOLE

REACTIONS (4)
  - Fatigue [None]
  - Alopecia [None]
  - Alopecia [None]
  - Back pain [None]
